FAERS Safety Report 20482172 (Version 1)
Quarter: 2022Q1

REPORT INFORMATION
  Report Type: Report from Study
  Country: FR (occurrence: FR)
  Receive Date: 20220216
  Receipt Date: 20220216
  Transmission Date: 20220424
  Serious: Yes (Other)
  Sender: FDA-Public Use
  Company Number: FR-BRISTOL-MYERS SQUIBB COMPANY-BMS-2022-021972

PATIENT
  Sex: Female
  Weight: 43 kg

DRUGS (2)
  1. NIVOLUMAB [Suspect]
     Active Substance: NIVOLUMAB
     Indication: Squamous cell carcinoma of head and neck
     Dosage: 480 MILLIGRAM
     Route: 042
     Dates: start: 20210601
  2. REGORAFENIB [Suspect]
     Active Substance: REGORAFENIB
     Indication: Squamous cell carcinoma of head and neck
     Dosage: 90 MILLIGRAM (30 MILLIGRAM TABLET)
     Route: 048
     Dates: start: 20210601

REACTIONS (1)
  - Hypoalbuminaemia [Not Recovered/Not Resolved]

NARRATIVE: CASE EVENT DATE: 20220111
